FAERS Safety Report 21010734 (Version 3)
Quarter: 2022Q3

REPORT INFORMATION
  Report Type: Spontaneous
  Country: US (occurrence: US)
  Receive Date: 20220627
  Receipt Date: 20220826
  Transmission Date: 20221027
  Serious: Yes (Hospitalization, Other)
  Sender: FDA-Public Use
  Company Number: US-PFIZER INC-202200877674

PATIENT
  Age: 73 Year
  Sex: Male
  Weight: 74.39 kg

DRUGS (5)
  1. LYRICA [Suspect]
     Active Substance: PREGABALIN
     Indication: Diabetic neuropathy
     Dosage: 75 MG, 2X/DAY (75 MG, BEFORE MORNING AND NIGHT)
  2. LYRICA [Suspect]
     Active Substance: PREGABALIN
     Dosage: 150 MG, 2X/DAY (150MG MORNING AND NIGHT)
  3. PREGABALIN [Suspect]
     Active Substance: PREGABALIN
     Indication: Diabetic neuropathy
     Dosage: 75 MG, 2X/DAY (75MG IN AM AND PM FOR 2 WEEKS)
  4. PREGABALIN [Suspect]
     Active Substance: PREGABALIN
     Indication: Neuropathy peripheral
     Dosage: 150 MG, 2X/DAY (150MG IN MORNING AND 150MG AT NIGHT WHICH IS THE MAX DOSE)
  5. LIDOCAINE [Suspect]
     Active Substance: LIDOCAINE
     Indication: Pain
     Dosage: 5 %

REACTIONS (12)
  - Pneumonia [Not Recovered/Not Resolved]
  - Influenza [Not Recovered/Not Resolved]
  - Pain [Recovered/Resolved]
  - Pulmonary function test decreased [Unknown]
  - Pain in extremity [Unknown]
  - Anger [Unknown]
  - Depression [Unknown]
  - Anxiety [Unknown]
  - Abdominal discomfort [Unknown]
  - Hyperhidrosis [Unknown]
  - Pruritus [Unknown]
  - Product dose omission issue [Unknown]

NARRATIVE: CASE EVENT DATE: 20220618
